FAERS Safety Report 14185377 (Version 1)
Quarter: 2017Q4

REPORT INFORMATION
  Report Type: Spontaneous
  Country: US (occurrence: US)
  Receive Date: 20171112
  Receipt Date: 20171112
  Transmission Date: 20180321
  Serious: No
  Sender: FDA-Public Use
  Company Number: None

PATIENT
  Sex: Male
  Weight: 117 kg

DRUGS (18)
  1. INVEGA SUSTENNA [Suspect]
     Active Substance: PALIPERIDONE PALMITATE
     Indication: SCHIZOPHRENIA
     Dosage: ?          OTHER FREQUENCY:ONCE A MONTH;?
     Route: 030
     Dates: start: 20160601, end: 20161001
  2. METFORMIN EXTENDED RELEASE [Concomitant]
     Active Substance: METFORMIN HYDROCHLORIDE
  3. CABERGOLINE. [Concomitant]
     Active Substance: CABERGOLINE
  4. REXULTI [Concomitant]
     Active Substance: BREXPIPRAZOLE
  5. VITAMIN D [Concomitant]
     Active Substance: CHOLECALCIFEROL
  6. METROPROLOL SUCCINATE EXTENDED RELEASE [Concomitant]
  7. VIBERZI [Concomitant]
     Active Substance: ELUXADOLINE
  8. BUPROPION HYDROCHLORIDE XL [Concomitant]
     Active Substance: BUPROPION HYDROCHLORIDE
  9. VIIBRYD [Concomitant]
     Active Substance: VILAZODONE HYDROCHLORIDE
  10. IRON [Concomitant]
     Active Substance: IRON
  11. CITRUCEL [Concomitant]
     Active Substance: METHYLCELLULOSE (4000 MPA.S)
  12. PHILLIPS COLON HEALTH [Concomitant]
  13. INVEGA TRINZA [Suspect]
     Active Substance: PALIPERIDONE PALMITATE
     Indication: SCHIZOPHRENIA
     Dosage: ?          OTHER FREQUENCY:ONCE EVERY 86 DAYS;?
     Route: 030
     Dates: start: 20161001
  14. PALIPERIDONE. [Concomitant]
     Active Substance: PALIPERIDONE
  15. BUSPIRONE HCL [Concomitant]
     Active Substance: BUSPIRONE HYDROCHLORIDE
  16. OMEPRAZOLE. [Concomitant]
     Active Substance: OMEPRAZOLE
  17. CPAP MACHINE [Concomitant]
  18. CHLOROPROMAZINE [Concomitant]
     Active Substance: CHLORPROMAZINE

REACTIONS (2)
  - Abnormal behaviour [None]
  - Insomnia [None]

NARRATIVE: CASE EVENT DATE: 20161001
